FAERS Safety Report 11071502 (Version 1)
Quarter: 2015Q2

REPORT INFORMATION
  Report Type: Spontaneous
  Country: ES (occurrence: None)
  Receive Date: 20150424
  Receipt Date: 20150424
  Transmission Date: 20150821
  Serious: Yes (Hospitalization, Other)
  Sender: FDA-Public Use
  Company Number: ES-ZYDUS-007795

PATIENT
  Age: 66 Year
  Sex: Female

DRUGS (2)
  1. QUETIAPINE (QUETIAPINE) [Suspect]
     Active Substance: QUETIAPINE
     Indication: PRODUCT USED FOR UNKNOWN INDICATION
     Dosage: 1.0DAYS
  2. OMEPRAZOLE (OMEPRAZOLE) [Suspect]
     Active Substance: OMEPRAZOLE
     Indication: PRODUCT USED FOR UNKNOWN INDICATION

REACTIONS (9)
  - Depression [None]
  - Tremor [None]
  - Poor quality sleep [None]
  - Nausea [None]
  - Respiratory distress [None]
  - Fatigue [None]
  - Sedation [None]
  - Palpitations [None]
  - Confusional state [None]
